FAERS Safety Report 9306887 (Version 1)
Quarter: 2013Q1

REPORT INFORMATION
  Report Type: Spontaneous
  Country: CA (occurrence: None)
  Receive Date: 20130307
  Receipt Date: 20130307
  Transmission Date: 20140127
  Serious: Yes (Hospitalization)
  Sender: FDA-Public Use
  Company Number: S12004535

PATIENT
  Age: 46 Year
  Sex: Female

DRUGS (3)
  1. COVERSYL [Suspect]
     Indication: HYPERTENSION
     Dosage: 2  MG,  QD;  ORAL?UNKNOWN;  UNKNOWN
     Route: 048
  2. GILENYA [Suspect]
     Indication: MULTIPLE SCLEROSIS
     Dates: start: 20111014, end: 201205
  3. CELEXA  /00582602/  (CITALOPRAM  HYDROBROMIDE) [Concomitant]

REACTIONS (10)
  - Chest pain [None]
  - Blood pressure inadequately controlled [None]
  - Dizziness [None]
  - Feeling drunk [None]
  - Headache [None]
  - Hypersensitivity [None]
  - Malaise [None]
  - Migraine [None]
  - Pyrexia [None]
  - Sciatica [None]
